FAERS Safety Report 11860927 (Version 1)
Quarter: 2015Q4

REPORT INFORMATION
  Report Type: Spontaneous
  Country: JP (occurrence: JP)
  Receive Date: 20151222
  Receipt Date: 20151222
  Transmission Date: 20160305
  Serious: Yes (Disabling, Other)
  Sender: FDA-Public Use
  Company Number: JP-PFIZER INC-2015462489

PATIENT
  Age: 68 Year
  Sex: Female

DRUGS (1)
  1. JZOLOFT [Suspect]
     Active Substance: SERTRALINE HYDROCHLORIDE
     Dosage: 50 MG, UNK
     Route: 048
     Dates: start: 200809, end: 201201

REACTIONS (4)
  - Dysphagia [Unknown]
  - Language disorder [Unknown]
  - Tardive dyskinesia [Unknown]
  - Mastication disorder [Unknown]
